FAERS Safety Report 9685191 (Version 1)
Quarter: 2013Q4

REPORT INFORMATION
  Report Type: Spontaneous
  Country: US (occurrence: None)
  Receive Date: 20131112
  Receipt Date: 20131112
  Transmission Date: 20140711
  Serious: Yes (Other)
  Sender: FDA-Public Use
  Company Number: None

PATIENT
  Age: 61 Year
  Sex: Female
  Weight: 54.43 kg

DRUGS (1)
  1. FORTEO [Suspect]
     Indication: OSTEOPOROSIS
     Dosage: 1 INJECTION PER DAY, ONCE DAILY, GIVEN INTO/UNDER THE SKIN

REACTIONS (2)
  - Chronic lymphocytic leukaemia [None]
  - Leukaemia [None]
